FAERS Safety Report 9729098 (Version 1)
Quarter: 2013Q4

REPORT INFORMATION
  Report Type: Spontaneous
  Country: JP (occurrence: JP)
  Receive Date: 20131204
  Receipt Date: 20131204
  Transmission Date: 20140711
  Serious: Yes (Other)
  Sender: FDA-Public Use
  Company Number: PHHY2013JP137223

PATIENT
  Age: 59 Year
  Sex: Female

DRUGS (2)
  1. IRINOTECAN SANDOZ [Suspect]
     Indication: CHEMOTHERAPY
     Dosage: 100 MG, DAILY
     Route: 042
  2. CISPLATIN [Suspect]
     Dosage: 100 MG, DAILY

REACTIONS (2)
  - Bone marrow failure [Unknown]
  - Diarrhoea [Unknown]
